FAERS Safety Report 21201203 (Version 2)
Quarter: 2022Q3

REPORT INFORMATION
  Report Type: Spontaneous
  Country: FR (occurrence: FR)
  Receive Date: 20220811
  Receipt Date: 20220831
  Transmission Date: 20221026
  Serious: Yes (Hospitalization)
  Sender: FDA-Public Use
  Company Number: FR-PFIZER INC-202201032091

PATIENT
  Age: 70 Year
  Sex: Male

DRUGS (6)
  1. SOMAVERT [Suspect]
     Active Substance: PEGVISOMANT
     Indication: Acromegaly
     Dosage: 30 MG, 4 DAYS PER WEEK
     Route: 058
     Dates: start: 201601
  2. SOMAVERT [Suspect]
     Active Substance: PEGVISOMANT
     Dosage: 5 INJECTIONS OF 20 MG PER WEEK; EXCEPT ON MONDAY AND FRIDAY
     Route: 058
  3. KEPPRA [Concomitant]
     Active Substance: LEVETIRACETAM
     Indication: Epilepsy
     Dosage: 1000 MG IN THE MORNING, 1500 MG IN THE EVENING
  4. SANDOSTATIN [Concomitant]
     Active Substance: OCTREOTIDE ACETATE
     Indication: Acromegaly
     Dosage: 40 UG, 4 DAYS PER WEEK
     Route: 030
     Dates: start: 2013
  5. TAHOR [Concomitant]
     Active Substance: ATORVASTATIN CALCIUM
     Indication: Dyslipidaemia
     Dosage: 10 MG, 1X/DAY
  6. IRBESARTAN [Concomitant]
     Active Substance: IRBESARTAN
     Indication: Hypertension
     Dosage: 150 MG, DAILY

REACTIONS (4)
  - Oxygen saturation decreased [Unknown]
  - Vertigo [Recovering/Resolving]
  - Chronic obstructive pulmonary disease [Unknown]
  - Off label use [Unknown]

NARRATIVE: CASE EVENT DATE: 20160101
